FAERS Safety Report 8993233 (Version 1)
Quarter: 2013Q1

REPORT INFORMATION
  Report Type: Spontaneous
  Country: US (occurrence: US)
  Receive Date: 20130102
  Receipt Date: 20130102
  Transmission Date: 20140127
  Serious: Yes (Other)
  Sender: FDA-Public Use
  Company Number: US-PFIZER INC-2013000401

PATIENT
  Age: 6 Decade
  Sex: Female
  Weight: 58.96 kg

DRUGS (6)
  1. LYRICA [Suspect]
     Indication: ANORECTAL DISORDER
     Dosage: UNK, AS NEEDED (EITHER 200MG OR 400MG DAILY)
     Route: 048
     Dates: start: 201212, end: 20121230
  2. LYRICA [Suspect]
     Indication: PAIN
  3. OXYCODONE HYDROCHLORIDE [Suspect]
     Indication: PAIN
     Dosage: UNK
     Route: 048
     Dates: end: 2012
  4. TRAMADOL HCL [Suspect]
     Dosage: UNK
  5. ASPIRIN [Suspect]
     Indication: CARDIAC DISORDER
     Dosage: 81 MG, UNK
  6. NORTRIPTYLINE [Suspect]
     Dosage: UNK

REACTIONS (10)
  - Cognitive disorder [Unknown]
  - Abnormal behaviour [Unknown]
  - Drug ineffective [Unknown]
  - Drug hypersensitivity [Unknown]
  - Abdominal discomfort [Unknown]
  - Abdominal pain upper [Unknown]
  - Vomiting [Unknown]
  - Malabsorption [Unknown]
  - Depression [Unknown]
  - Fear [Unknown]
